FAERS Safety Report 17463178 (Version 7)
Quarter: 2023Q2

REPORT INFORMATION
  Report Type: Other
  Country: CA (occurrence: None)
  Receive Date: 20200226
  Receipt Date: 20230626
  Transmission Date: 20230721
  Serious: Yes (Other)
  Sender: FDA-Public Use
  Company Number: CA-ROCHE-2554238

PATIENT
  Age: 33 Year
  Sex: Female

DRUGS (7)
  1. OCREVUS [Suspect]
     Active Substance: OCRELIZUMAB
     Indication: Relapsing-remitting multiple sclerosis
     Dosage: 300 MG AT DAY 0 AND 14, THEN 600 MG EVERY 6 MONTH
     Route: 042
     Dates: start: 20200129
  2. OCREVUS [Suspect]
     Active Substance: OCRELIZUMAB
     Indication: Multiple sclerosis
     Dosage: FORMULATION: 300MG (30MG/ML)
     Route: 042
     Dates: start: 20230615
  3. DULOXETINE [Concomitant]
     Active Substance: DULOXETINE
  4. PREGABALIN [Concomitant]
     Active Substance: PREGABALIN
  5. ZOFRAN [Concomitant]
     Active Substance: ONDANSETRON HYDROCHLORIDE
  6. LAMOTRIGINE [Concomitant]
     Active Substance: LAMOTRIGINE
  7. ZOLPIDEM [Concomitant]
     Active Substance: ZOLPIDEM TARTRATE
     Dosage: AT NIGHT

REACTIONS (3)
  - Anaphylactic reaction [Recovered/Resolved]
  - Infusion related reaction [Recovered/Resolved]
  - Infusion related reaction [Recovered/Resolved]

NARRATIVE: CASE EVENT DATE: 20200129
